FAERS Safety Report 14488314 (Version 1)
Quarter: 2018Q1

REPORT INFORMATION
  Report Type: Spontaneous
  Country: FR (occurrence: FR)
  Receive Date: 20180205
  Receipt Date: 20180205
  Transmission Date: 20180509
  Serious: Yes (Hospitalization)
  Sender: FDA-Public Use
  Company Number: FR-MYLANLABS-2018M1006950

PATIENT
  Age: 56 Year
  Sex: Female
  Weight: 47 kg

DRUGS (1)
  1. PACLITAXEL. [Suspect]
     Active Substance: PACLITAXEL
     Indication: OVARIAN CYST
     Dosage: 120 MG, CYCLE
     Route: 041
     Dates: start: 2017

REACTIONS (6)
  - Weight decreased [Unknown]
  - Tonsillitis [Unknown]
  - Nausea [Unknown]
  - Vomiting [Unknown]
  - Aplasia [Unknown]
  - Diffuse alopecia [Unknown]

NARRATIVE: CASE EVENT DATE: 20170905
